FAERS Safety Report 13398924 (Version 1)
Quarter: 2017Q2

REPORT INFORMATION
  Report Type: Spontaneous
  Country: US (occurrence: US)
  Receive Date: 20170404
  Receipt Date: 20170404
  Transmission Date: 20170830
  Serious: Yes (Hospitalization, Other)
  Sender: FDA-Public Use
  Company Number: US-DENTSPLY-2017SCDP000030

PATIENT
  Age: 3 Year
  Sex: Male

DRUGS (1)
  1. TOPEX (BENZOCAINE) [Suspect]
     Active Substance: BENZOCAINE
     Indication: PRODUCT USED FOR UNKNOWN INDICATION
     Dosage: UNK
     Route: 048

REACTIONS (4)
  - Hypoglycaemia [Unknown]
  - Methaemoglobinaemia [None]
  - Accidental exposure to product by child [Unknown]
  - Tachycardia [Unknown]
